FAERS Safety Report 12572237 (Version 6)
Quarter: 2019Q2

REPORT INFORMATION
  Report Type: Spontaneous
  Country: US (occurrence: US)
  Receive Date: 20160719
  Receipt Date: 20190606
  Transmission Date: 20190711
  Serious: Yes (Hospitalization, Other)
  Sender: FDA-Public Use
  Company Number: US-PFIZER INC-2016348973

PATIENT
  Age: 26 Year
  Sex: Male
  Weight: 117 kg

DRUGS (12)
  1. GENOTROPIN [Suspect]
     Active Substance: SOMATROPIN
     Indication: PRADER-WILLI SYNDROME
     Dosage: 1 MG, 1X/DAY (7 DAYS PER WEEK)
     Route: 058
     Dates: start: 1992, end: 20180129
  2. GENOTROPIN [Suspect]
     Active Substance: SOMATROPIN
     Indication: PRADER-WILLI SYNDROME
     Dosage: UNK
     Dates: start: 1992, end: 20180129
  3. GENOTROPIN [Suspect]
     Active Substance: SOMATROPIN
     Dosage: 0.7 MG, DAILY
  4. LEVOTHYROXINE. [Concomitant]
     Active Substance: LEVOTHYROXINE
     Indication: HYPOTHYROIDISM
     Dosage: 1.25 MG, 1X/DAY
     Route: 048
  5. WELLBUTRIN [Concomitant]
     Active Substance: BUPROPION HYDROCHLORIDE
     Indication: ANXIETY
     Dosage: 300 MG, 1X/DAY
     Route: 048
     Dates: start: 201606
  6. TESTOSTERONE. [Concomitant]
     Active Substance: TESTOSTERONE
     Indication: ENDOCRINE DISORDER
     Dosage: 375 MG, UNK (EVERY 3 WEEKS)
     Route: 030
  7. VICTOZA [Concomitant]
     Active Substance: LIRAGLUTIDE
     Indication: DIABETES MELLITUS
     Dosage: 1.2 MG, DAILY
     Route: 058
     Dates: start: 20180122
  8. PROSCAR [Concomitant]
     Active Substance: FINASTERIDE
     Indication: ALOPECIA
     Dosage: 2.5 MG, 1X/DAY
     Route: 048
  9. WELLBUTRIN [Concomitant]
     Active Substance: BUPROPION HYDROCHLORIDE
     Indication: DEPRESSION
  10. ARIMIDEX [Concomitant]
     Active Substance: ANASTROZOLE
     Indication: BODY FAT DISORDER
  11. ARIMIDEX [Concomitant]
     Active Substance: ANASTROZOLE
     Indication: DRUG THERAPY ENHANCEMENT
     Dosage: 1 MG, 1X/DAY
     Route: 048
     Dates: start: 20170602
  12. VITAMIN D3 [Concomitant]
     Active Substance: CHOLECALCIFEROL
     Dosage: UNK

REACTIONS (4)
  - Glycosylated haemoglobin increased [Not Recovered/Not Resolved]
  - Off label use [Unknown]
  - Peripheral swelling [Not Recovered/Not Resolved]
  - Cellulitis [Not Recovered/Not Resolved]
